FAERS Safety Report 23788068 (Version 1)
Quarter: 2024Q2

REPORT INFORMATION
  Report Type: Spontaneous
  Country: US (occurrence: US)
  Receive Date: 20240426
  Receipt Date: 20240426
  Transmission Date: 20240716
  Serious: No
  Sender: FDA-Public Use
  Company Number: US-TARO PHARMACEUTICALS USA INC.-2024TAR00092

PATIENT

DRUGS (3)
  1. FLUOROURACIL [Suspect]
     Active Substance: FLUOROURACIL
     Indication: Basal cell carcinoma
     Dosage: UNK,EVERY NIGHT 12 HOURS PER THE INSTRUCTIONS
     Route: 061
     Dates: start: 202401
  2. TESTOSTERONE [Concomitant]
     Active Substance: TESTOSTERONE
     Indication: Product used for unknown indication
     Dosage: UNK, 100 MG PER ML AND VARIES DUE TO LUNAR PHASES CURRENTLY TAKING 2 ML IN MORNING AND 5 IN EVENING
     Route: 065
  3. PROGESTERONE [Concomitant]
     Active Substance: PROGESTERONE
     Indication: Product used for unknown indication
     Dosage: UNK, 4 MG 2 MLS.
     Route: 065

REACTIONS (2)
  - Pigmentation disorder [Not Recovered/Not Resolved]
  - Erythema [Not Recovered/Not Resolved]
